FAERS Safety Report 5648679-0 (Version None)
Quarter: 2008Q1

REPORT INFORMATION
  Report Type: 
  Country: None (occurrence: None)
  Receive Date: 20080304
  Receipt Date: 20080229
  Transmission Date: 20080703
  Serious: Yes (Other)
  Sender: FDA-Public Use
  Company Number: B0505848A

PATIENT
  Age: 12 Year
  Sex: Male
  Weight: 46 kg

DRUGS (5)
  1. RELENZA [Suspect]
     Indication: INFLUENZA
     Dosage: 10MG TWICE PER DAY
     Route: 055
     Dates: start: 20080123, end: 20080128
  2. ASTOMIN [Concomitant]
     Indication: INFLUENZA
     Route: 048
     Dates: start: 20080123, end: 20080130
  3. MUCODYNE [Concomitant]
     Indication: INFLUENZA
     Route: 048
     Dates: start: 20080123, end: 20080130
  4. CLARITIN [Concomitant]
     Indication: DRUG USE FOR UNKNOWN INDICATION
     Route: 048
  5. CLARITIN [Concomitant]
     Indication: RHINITIS
     Route: 048
     Dates: start: 20080123, end: 20080130

REACTIONS (2)
  - ABNORMAL BEHAVIOUR [None]
  - MIDDLE INSOMNIA [None]
